FAERS Safety Report 9010893 (Version 2)
Quarter: 2013Q1

REPORT INFORMATION
  Report Type: Spontaneous
  Country: FR (occurrence: FR)
  Receive Date: 20130109
  Receipt Date: 20130327
  Transmission Date: 20140127
  Serious: Yes (Death, Hospitalization, Other)
  Sender: FDA-Public Use
  Company Number: FR-PFIZER INC-2013007281

PATIENT
  Age: 82 Year
  Sex: Male

DRUGS (7)
  1. AMIODARONE HCL [Suspect]
     Dosage: 200 MG 5 TIMES WEEKLY
     Route: 048
     Dates: start: 2007, end: 20121114
  2. AMLOR [Suspect]
     Dosage: 20 MG, 1X/DAY
     Route: 048
     Dates: end: 20121111
  3. LASILIX [Suspect]
     Dosage: 20 MG, 1X/DAY
     Route: 048
  4. FLUVASTATINE [Suspect]
     Dosage: 20 MG, 1X/DAY
     Route: 048
     Dates: end: 20121111
  5. COKENZEN [Suspect]
     Dosage: UNK
     Route: 048
     Dates: end: 20121111
  6. ELIGARD [Suspect]
     Dosage: 45 MG TWICE YEARLY
     Route: 058
  7. LEVOTHYROX [Suspect]
     Dosage: 50 UG, 1X/DAY
     Route: 048

REACTIONS (8)
  - Lung disorder [Fatal]
  - Acute respiratory distress syndrome [Fatal]
  - Cardiac failure [Unknown]
  - Pseudomonas infection [Unknown]
  - Acute pulmonary oedema [None]
  - Fluid retention [None]
  - Treatment failure [None]
  - Haemodynamic instability [None]
